FAERS Safety Report 13661910 (Version 2)
Quarter: 2022Q1

REPORT INFORMATION
  Report Type: Report from Study
  Country: US (occurrence: US)
  Receive Date: 20170616
  Receipt Date: 20220118
  Transmission Date: 20220423
  Serious: Yes (Other)
  Sender: FDA-Public Use
  Company Number: US-PFIZER INC-2017250474

PATIENT
  Age: 57 Year
  Sex: Male
  Weight: 111 kg

DRUGS (1)
  1. CRIZOTINIB [Suspect]
     Active Substance: CRIZOTINIB
     Indication: Papillary renal cell carcinoma
     Dosage: 250 MG, CYCLIC (CYCLE = 42 DAYS, BID)
     Route: 048
     Dates: start: 20161128

REACTIONS (1)
  - Pain in extremity [Unknown]

NARRATIVE: CASE EVENT DATE: 20170424
